FAERS Safety Report 5094668-7 (Version None)
Quarter: 2006Q3

REPORT INFORMATION
  Report Type: 
  Country: None (occurrence: None)
  Receive Date: 20060731
  Receipt Date: 20060420
  Transmission Date: 20061208
  Serious: No
  Sender: FDA-Public Use
  Company Number: 2006PV012434

PATIENT
  Age: 45 Year
  Sex: Female
  Weight: 158.759 kg

DRUGS (5)
  1. BYETTA [Suspect]
     Indication: DIABETES MELLITUS NON-INSULIN-DEPENDENT
     Dosage: 5 MCG; BID; SC
     Route: 058
     Dates: start: 20060415
  2. METFORMIN HCL [Concomitant]
  3. AMARYL [Concomitant]
  4. COUMADIN [Concomitant]
  5. AVANDAMET [Concomitant]

REACTIONS (1)
  - POLYMENORRHOEA [None]
